FAERS Safety Report 14503099 (Version 2)
Quarter: 2019Q3

REPORT INFORMATION
  Report Type: Spontaneous
  Country: US (occurrence: US)
  Receive Date: 20180208
  Receipt Date: 20190701
  Transmission Date: 20191004
  Serious: Yes (Death, Hospitalization)
  Sender: FDA-Public Use
  Company Number: US-PFIZER INC-2017486859

PATIENT
  Age: 63 Year
  Sex: Female

DRUGS (3)
  1. IBRANCE [Suspect]
     Active Substance: PALBOCICLIB
     Indication: OVARIAN CANCER
     Dosage: 75 MG, CYCLIC (DAILY, 21 DAYS + 7 DAYS OFF WITH FOOD)
     Route: 048
  2. IBRANCE [Suspect]
     Active Substance: PALBOCICLIB
     Dosage: 75 MG, DAILY WITH FOOD
     Route: 048
     Dates: start: 20171026
  3. LENVIMA [Concomitant]
     Active Substance: LENVATINIB
     Dosage: UNK

REACTIONS (5)
  - Product use in unapproved indication [Unknown]
  - Vaginal fistula [Fatal]
  - Intestinal perforation [Fatal]
  - Arthralgia [Unknown]
  - Pneumonia [Fatal]

NARRATIVE: CASE EVENT DATE: 201809
